FAERS Safety Report 26193702 (Version 1)
Quarter: 2025Q4

REPORT INFORMATION
  Report Type: Spontaneous
  Country: US (occurrence: None)
  Receive Date: 20251224
  Receipt Date: 20251224
  Transmission Date: 20260118
  Serious: Yes (Hospitalization)
  Sender: FDA-CTU
  Company Number: None

PATIENT
  Age: 71 Year
  Sex: Female
  Weight: 117 kg

DRUGS (4)
  1. CISPLATIN [Suspect]
     Active Substance: CISPLATIN
     Dates: end: 20251201
  2. DOXORUBICIN HYDROCHLORIDE [Suspect]
     Active Substance: DOXORUBICIN HYDROCHLORIDE
     Dates: end: 20251201
  3. METHOTREXATE [Suspect]
     Active Substance: METHOTREXATE
     Dates: end: 20251201
  4. VINBLASTINE SULFATE [Suspect]
     Active Substance: VINBLASTINE SULFATE

REACTIONS (9)
  - Pulmonary embolism [None]
  - Acute kidney injury [None]
  - Abdominal pain upper [None]
  - Nausea [None]
  - Haematemesis [None]
  - Constipation [None]
  - White blood cell count decreased [None]
  - Haemoglobin decreased [None]
  - Platelet count decreased [None]

NARRATIVE: CASE EVENT DATE: 20251209
